FAERS Safety Report 17983951 (Version 1)
Quarter: 2020Q3

REPORT INFORMATION
  Report Type: Spontaneous
  Country: US (occurrence: US)
  Receive Date: 20200706
  Receipt Date: 20200706
  Transmission Date: 20201103
  Serious: Yes (Other)
  Sender: FDA-Public Use
  Company Number: None

PATIENT
  Sex: Male

DRUGS (1)
  1. GADAVIST [Suspect]
     Active Substance: GADOBUTROL

REACTIONS (5)
  - Cough [None]
  - Throat irritation [None]
  - Nasal discomfort [None]
  - Tongue pruritus [None]
  - Eye pruritus [None]

NARRATIVE: CASE EVENT DATE: 20200615
